FAERS Safety Report 18278075 (Version 7)
Quarter: 2021Q3

REPORT INFORMATION
  Report Type: Report from Study
  Country: None (occurrence: US)
  Receive Date: 20200917
  Receipt Date: 20210825
  Transmission Date: 20211014
  Serious: Yes (Hospitalization, Other)
  Sender: FDA-Public Use
  Company Number: US-ABBVIE-20K-163-3494060-00

PATIENT
  Sex: Female

DRUGS (5)
  1. HUMIRA [Suspect]
     Active Substance: ADALIMUMAB
     Route: 058
     Dates: start: 20210423
  2. SULFASALAZINE. [Concomitant]
     Active Substance: SULFASALAZINE
     Indication: PRODUCT USED FOR UNKNOWN INDICATION
  3. HUMIRA [Suspect]
     Active Substance: ADALIMUMAB
     Indication: CROHN^S DISEASE
     Route: 058
     Dates: start: 2016, end: 2017
  4. HUMIRA [Suspect]
     Active Substance: ADALIMUMAB
     Route: 058
     Dates: start: 20200709, end: 20210115
  5. MODERNA COVID?19 VACCINE [Concomitant]
     Active Substance: CX-024414
     Indication: COVID-19 IMMUNISATION
     Dosage: MODERNA
     Route: 030

REACTIONS (33)
  - Cardiac disorder [Unknown]
  - Cardiovascular disorder [Unknown]
  - Spinal fracture [Recovered/Resolved]
  - Abnormal dreams [Unknown]
  - Unevaluable event [Unknown]
  - Hypertension [Unknown]
  - Supraventricular tachycardia [Recovered/Resolved]
  - Skin cancer [Unknown]
  - Nausea [Unknown]
  - Depressed mood [Unknown]
  - Supraventricular tachycardia [Unknown]
  - Night sweats [Unknown]
  - Spinal pain [Unknown]
  - Limb injury [Unknown]
  - Anal incontinence [Unknown]
  - Adverse food reaction [Unknown]
  - Infrequent bowel movements [Unknown]
  - Weight increased [Unknown]
  - Depression [Not Recovered/Not Resolved]
  - Back pain [Recovering/Resolving]
  - Crohn^s disease [Not Recovered/Not Resolved]
  - Pneumonia [Unknown]
  - Spinal fracture [Unknown]
  - Gait disturbance [Recovering/Resolving]
  - Peripheral swelling [Unknown]
  - Middle insomnia [Not Recovered/Not Resolved]
  - Insomnia [Unknown]
  - Cough [Unknown]
  - Loss of personal independence in daily activities [Unknown]
  - Heart rate decreased [Unknown]
  - Anxiety [Not Recovered/Not Resolved]
  - Arthritis [Not Recovered/Not Resolved]
  - Diarrhoea [Recovered/Resolved]

NARRATIVE: CASE EVENT DATE: 2019
